FAERS Safety Report 8232664-9 (Version None)
Quarter: 2012Q1

REPORT INFORMATION
  Report Type: 
  Country: None (occurrence: None)
  Receive Date: 20120323
  Receipt Date: 20120316
  Transmission Date: 20120608
  Serious: Yes (Other)
  Sender: FDA-Public Use
  Company Number: BR-PFIZER INC-2012070760

PATIENT
  Sex: Female

DRUGS (1)
  1. XALATAN [Suspect]
     Indication: INTRAOCULAR PRESSURE TEST ABNORMAL
     Dosage: 6 UG (TWO DROPS IN EACH EYE), 2X/DAY
     Route: 047
     Dates: start: 20060101

REACTIONS (1)
  - BLINDNESS [None]
